FAERS Safety Report 19434330 (Version 1)
Quarter: 2021Q2

REPORT INFORMATION
  Report Type: Spontaneous
  Country: US (occurrence: US)
  Receive Date: 20210617
  Receipt Date: 20210617
  Transmission Date: 20210717
  Serious: No
  Sender: FDA-Public Use
  Company Number: US-ROCHE-2624228

PATIENT
  Age: 63 Year
  Sex: Female

DRUGS (16)
  1. ALPRAZOLAM. [Concomitant]
     Active Substance: ALPRAZOLAM
  2. METOPROLOL. [Concomitant]
     Active Substance: METOPROLOL
  3. RIZATRIPTAN. [Concomitant]
     Active Substance: RIZATRIPTAN
  4. VICTOZA [Concomitant]
     Active Substance: LIRAGLUTIDE
  5. METOPROLOL. [Concomitant]
     Active Substance: METOPROLOL
  6. HYDROCODONE [Concomitant]
     Active Substance: HYDROCODONE
     Dosage: TAB 10?325 MG
  7. TIZANIDINE. [Concomitant]
     Active Substance: TIZANIDINE
  8. BIOTIN [Concomitant]
     Active Substance: BIOTIN
     Dosage: 1000MCG
  9. MONTELUKAST SODIUM. [Concomitant]
     Active Substance: MONTELUKAST SODIUM
  10. APIDRA SOLOSTAR [Concomitant]
     Active Substance: INSULIN GLULISINE
     Dosage: 100 UNIT/ML
  11. ACTEMRA [Suspect]
     Active Substance: TOCILIZUMAB
     Indication: RHEUMATOID ARTHRITIS
     Dosage: INJECT 0.9 ML (162MG) SUBCUTANEOUSLY EVERY WEEK FOR RA
     Route: 058
  12. MAGNESIUM [Concomitant]
     Active Substance: MAGNESIUM
  13. LANTUS [Concomitant]
     Active Substance: INSULIN GLARGINE
  14. LEVOTHYROXINE. [Concomitant]
     Active Substance: LEVOTHYROXINE
  15. VITAMIN D NOS [Concomitant]
     Active Substance: VITAMIN D NOS
     Dosage: 2000 UNIT
  16. ONDANSETRAN [Concomitant]
     Active Substance: ONDANSETRON HYDROCHLORIDE

REACTIONS (1)
  - Infection [Unknown]

NARRATIVE: CASE EVENT DATE: 20200614
